FAERS Safety Report 7518045-1 (Version None)
Quarter: 2011Q2

REPORT INFORMATION
  Report Type: 
  Country: None (occurrence: None)
  Receive Date: 20110602
  Receipt Date: 20110519
  Transmission Date: 20111010
  Serious: Yes (Hospitalization, Other)
  Sender: FDA-Public Use
  Company Number: JP-JNJFOC-20110509879

PATIENT
  Age: 49 Year
  Sex: Male

DRUGS (11)
  1. RISPERDAL [Suspect]
     Indication: PRODUCT USED FOR UNKNOWN INDICATION
     Route: 048
  2. RHYTHMY [Concomitant]
     Route: 048
  3. CLONAZEPAM [Concomitant]
     Route: 048
  4. INVEGA [Suspect]
     Indication: SCHIZOPHRENIA
     Route: 048
     Dates: start: 20110422, end: 20110505
  5. NELBON [Concomitant]
     Route: 048
  6. VEGETAMIN-A [Concomitant]
     Route: 048
  7. AKINETON [Concomitant]
     Route: 048
  8. HIRNAMINE [Concomitant]
     Route: 048
  9. HIRNAMINE [Concomitant]
     Route: 048
  10. VEGETAMIN-A [Concomitant]
     Route: 048
  11. LEXOTAN [Concomitant]
     Route: 048

REACTIONS (3)
  - DRUG PRESCRIBING ERROR [None]
  - NEUROLEPTIC MALIGNANT SYNDROME [None]
  - BLOOD GLUCOSE INCREASED [None]
